FAERS Safety Report 9054349 (Version 2)
Quarter: 2013Q1

REPORT INFORMATION
  Report Type: Spontaneous
  Country: US (occurrence: US)
  Receive Date: 20130208
  Receipt Date: 20130314
  Transmission Date: 20140127
  Serious: Yes (Hospitalization)
  Sender: FDA-Public Use
  Company Number: US-B.I. PHARMACEUTICALS,INC./RIDGEFIELD-2013-BI-03364BP

PATIENT
  Age: 83 None
  Sex: Female
  Weight: 92.53 kg

DRUGS (12)
  1. PRADAXA [Suspect]
     Indication: ANTICOAGULANT THERAPY
     Dosage: 300 MG
     Dates: start: 20120318, end: 20120403
  2. LOMOTIL [Concomitant]
  3. LISINOPRIL [Concomitant]
  4. ASPIRIN [Concomitant]
  5. LEXAPRO [Concomitant]
  6. PRAVACHOL [Concomitant]
  7. NEXIUM [Concomitant]
  8. VITAMIN D3 [Concomitant]
  9. VITAMIN C [Concomitant]
  10. LOPRESSOR [Concomitant]
     Dosage: 100 MG
  11. AMIODARONE [Concomitant]
     Dosage: 200 MG
  12. ASPIRIN [Concomitant]
     Dosage: 81 MG

REACTIONS (1)
  - Gastrointestinal haemorrhage [Recovered/Resolved]
